FAERS Safety Report 20975752 (Version 1)
Quarter: 2022Q2

REPORT INFORMATION
  Report Type: Spontaneous
  Country: GB (occurrence: None)
  Receive Date: 20220617
  Receipt Date: 20220617
  Transmission Date: 20220721
  Serious: Yes (Disabling)
  Sender: FDA-Public Use
  Company Number: 2022A217746

PATIENT
  Age: 72 Year
  Sex: Male
  Weight: 98 kg

DRUGS (14)
  1. DAPAGLIFLOZIN [Suspect]
     Active Substance: DAPAGLIFLOZIN
     Route: 048
     Dates: start: 20220607
  2. AMOXICILLIN [Concomitant]
     Active Substance: AMOXICILLIN
     Dosage: SEVEN DAYS -RESCUE MED...
     Dates: start: 20211119
  3. ASPIRIN [Concomitant]
     Active Substance: ASPIRIN
     Dosage: (SWALLOWED WHOLE OR ...
     Dates: start: 20210809
  4. BISOPROLOL [Concomitant]
     Active Substance: BISOPROLOL
     Dates: start: 20211109
  5. CARBOCYSTEINE [Concomitant]
     Active Substance: CARBOCYSTEINE
     Dates: start: 20210811
  6. DAPAGLIFLOZIN [Concomitant]
     Active Substance: DAPAGLIFLOZIN
     Dosage: .
     Dates: start: 20220509
  7. EDOXABAN [Concomitant]
     Active Substance: EDOXABAN
     Dosage: TAKE ONE TABLET ONCE A DAY. THIS IS AN ANTICOA...
     Dates: start: 20210809
  8. FUROSEMIDE [Concomitant]
     Active Substance: FUROSEMIDE
     Dosage: EACH MORNING
     Dates: start: 20211117
  9. LANSOPRAZOLE [Concomitant]
     Active Substance: LANSOPRAZOLE
     Dates: start: 20210525
  10. PREDNISOLONE [Concomitant]
     Active Substance: PREDNISOLONE
     Dosage: 5 DAYS -RESCUE MEDICATION
     Dates: start: 20211119
  11. RAMIPRIL [Concomitant]
     Active Substance: RAMIPRIL
     Dates: start: 20211004
  12. ALBUTEROL [Concomitant]
     Active Substance: ALBUTEROL
     Dosage: INHALE ONE TO TWO PUFFS UP TO FOUR TIMES DAILY ...
     Dates: start: 20210811, end: 20220328
  13. SPIRONOLACTONE [Concomitant]
     Active Substance: SPIRONOLACTONE
     Dates: start: 20210525
  14. SYMBICORT [Concomitant]
     Active Substance: BUDESONIDE\FORMOTEROL FUMARATE DIHYDRATE
     Dosage: 2 PUFFS 2 TIMES A DAY
     Dates: start: 20210811

REACTIONS (2)
  - Myalgia [Recovered/Resolved]
  - Malaise [Unknown]

NARRATIVE: CASE EVENT DATE: 20220607
